FAERS Safety Report 15961261 (Version 1)
Quarter: 2019Q1

REPORT INFORMATION
  Report Type: Spontaneous
  Country: US (occurrence: US)
  Receive Date: 20190214
  Receipt Date: 20190214
  Transmission Date: 20190417
  Serious: No
  Sender: FDA-Public Use
  Company Number: US-TEVA-2019-US-999952

PATIENT
  Sex: Female

DRUGS (2)
  1. ACTAVIS  CLONAZEPAM [Suspect]
     Active Substance: CLONAZEPAM
     Indication: ANXIETY
  2. ACTAVIS  CLONAZEPAM [Suspect]
     Active Substance: CLONAZEPAM
     Indication: PANIC ATTACK
     Dates: start: 201808

REACTIONS (5)
  - Feeling jittery [Unknown]
  - Panic attack [Not Recovered/Not Resolved]
  - Social avoidant behaviour [Unknown]
  - Product substitution issue [Unknown]
  - Anxiety [Not Recovered/Not Resolved]

NARRATIVE: CASE EVENT DATE: 201808
